FAERS Safety Report 5638354-0 (Version None)
Quarter: 2008Q1

REPORT INFORMATION
  Report Type: 
  Country: None (occurrence: None)
  Receive Date: 20080131
  Receipt Date: 20071116
  Transmission Date: 20080703
  Serious: No
  Sender: FDA-Public Use
  Company Number: 163-21880-07110986

PATIENT
  Sex: Female

DRUGS (2)
  1. REVLIMID [Suspect]
     Indication: MULTIPLE MYELOMA
     Dosage: 10 MG, 1 IN 1 D, ORAL ; 15 - 25 MG, DAILY, ORAL
     Route: 048
     Dates: start: 20070222, end: 20070601
  2. REVLIMID [Suspect]
     Indication: MULTIPLE MYELOMA
     Dosage: 10 MG, 1 IN 1 D, ORAL ; 15 - 25 MG, DAILY, ORAL
     Route: 048
     Dates: start: 20070622

REACTIONS (2)
  - HYPOTENSION [None]
  - LOSS OF CONTROL OF LEGS [None]
